FAERS Safety Report 13949982 (Version 1)
Quarter: 2017Q3

REPORT INFORMATION
  Report Type: Spontaneous
  Country: US (occurrence: US)
  Receive Date: 20170908
  Receipt Date: 20170908
  Transmission Date: 20171128
  Serious: Yes (Other)
  Sender: FDA-Public Use
  Company Number: US-ROCHE-1133999

PATIENT
  Sex: Female

DRUGS (1)
  1. RITUXAN [Suspect]
     Active Substance: RITUXIMAB
     Indication: NON-HODGKIN^S LYMPHOMA STAGE IV
     Route: 065
     Dates: start: 19980317

REACTIONS (9)
  - Hyperhidrosis [Unknown]
  - Urticaria [Unknown]
  - Swelling face [Unknown]
  - Retching [Unknown]
  - Ear swelling [Unknown]
  - Hypotension [Unknown]
  - Pharyngeal oedema [Unknown]
  - Pruritus [Unknown]
  - Anaemia [Unknown]
